FAERS Safety Report 8271928-X (Version None)
Quarter: 2012Q2

REPORT INFORMATION
  Report Type: 
  Country: None (occurrence: None)
  Receive Date: 20120410
  Receipt Date: 20120402
  Transmission Date: 20120825
  Serious: No
  Sender: FDA-Public Use
  Company Number: US-JNJFOC-20120401451

PATIENT
  Sex: Male
  Weight: 131.54 kg

DRUGS (15)
  1. FENTANYL-100 [Suspect]
     Dosage: NDC#: 0781 7240 55
     Route: 062
  2. COLAZAL [Concomitant]
     Indication: CROHN'S DISEASE
     Route: 048
  3. PRILOSEC [Concomitant]
     Indication: GASTROOESOPHAGEAL REFLUX DISEASE
     Route: 048
  4. TRADJENTA [Concomitant]
     Indication: DIABETES MELLITUS
     Route: 048
  5. METFORMIN HCL [Concomitant]
     Indication: DIABETES MELLITUS
     Route: 048
  6. MOBIC [Concomitant]
     Indication: ARTHRITIS
     Route: 048
  7. BENAZEPRIL HYDROCHLORIDE [Concomitant]
     Indication: BLOOD PRESSURE
     Route: 048
  8. HYDROCHLOROTHIAZIDE [Concomitant]
     Indication: BLOOD PRESSURE
     Route: 048
  9. REMICADE [Concomitant]
     Indication: CROHN'S DISEASE
     Route: 042
  10. ENTOCORT EC [Concomitant]
     Indication: CROHN'S DISEASE
     Route: 048
  11. POTASSIUM [Concomitant]
     Indication: MUSCLE SPASMS
     Route: 048
  12. XIFAXAN [Concomitant]
     Indication: CROHN'S DISEASE
     Route: 048
  13. LIPITOR [Concomitant]
     Indication: BLOOD TRIGLYCERIDES INCREASED
     Route: 048
  14. FENTANYL-100 [Suspect]
     Indication: PAIN
     Dosage: NDC#: 0781 7241 55
     Route: 062
  15. GLYBURIDE [Concomitant]
     Indication: DIABETES MELLITUS
     Route: 048

REACTIONS (2)
  - WRONG TECHNIQUE IN DRUG USAGE PROCESS [None]
  - PRODUCT QUALITY ISSUE [None]
